FAERS Safety Report 24796063 (Version 2)
Quarter: 2025Q1

REPORT INFORMATION
  Report Type: Spontaneous
  Country: US (occurrence: US)
  Receive Date: 20250101
  Receipt Date: 20250103
  Transmission Date: 20250408
  Serious: No
  Sender: NOVARTIS
  Company Number: US-002147023-NVSC2024US246090

PATIENT
  Sex: Female

DRUGS (1)
  1. COSENTYX [Suspect]
     Active Substance: SECUKINUMAB
     Indication: Device defective
     Route: 065

REACTIONS (4)
  - Device defective [Not Recovered/Not Resolved]
  - Product storage error [Unknown]
  - Device malfunction [Unknown]
  - Product dose omission issue [Not Recovered/Not Resolved]
